FAERS Safety Report 5731317-6 (Version None)
Quarter: 2008Q2

REPORT INFORMATION
  Report Type: 
  Country: None (occurrence: None)
  Receive Date: 20080506
  Receipt Date: 20080421
  Transmission Date: 20081010
  Serious: Yes (Other)
  Sender: FDA-Public Use
  Company Number: 001-0073-M0100134

PATIENT
  Age: 33 Year
  Sex: Female
  Weight: 50.3 kg

DRUGS (8)
  1. ZYRTEC [Suspect]
     Indication: URTICARIA
     Dosage: 5 MG (2.5 MG,2 IN 1 D) ,ORAL
     Route: 048
     Dates: start: 20030325
  2. DILANTIN KAPSEAL [Suspect]
     Indication: GRAND MAL CONVULSION
     Dosage: ORAL
     Route: 048
     Dates: start: 19550101
  3. NEURONTIN [Suspect]
     Indication: CONVULSION
     Dosage: 300 MG, ORAL
     Route: 048
     Dates: start: 20010226, end: 20010301
  4. SYNTHROID [Suspect]
     Indication: HYPOTHYROIDISM
     Dosage: ORAL
     Route: 048
     Dates: start: 19650101
  5. COLD-EEZE /PRI/ (ZINC GLUCONATE) [Suspect]
     Indication: MULTIPLE ALLERGIES
  6. CENTRUM (MINERALS NOS, VITAMINS NOS) [Concomitant]
     Indication: MULTIPLE ALLERGIES
  7. TUMS (CALCIUM CARBONATE) [Concomitant]
  8. KEPPRA [Concomitant]

REACTIONS (28)
  - AMNESIA [None]
  - ANTICONVULSANT DRUG LEVEL DECREASED [None]
  - BALANCE DISORDER [None]
  - BLOOD THYROID STIMULATING HORMONE INCREASED [None]
  - BODY HEIGHT DECREASED [None]
  - BURNING SENSATION [None]
  - CONDITION AGGRAVATED [None]
  - CONVULSION [None]
  - COORDINATION ABNORMAL [None]
  - DIARRHOEA [None]
  - DISEASE RECURRENCE [None]
  - DRUG INTERACTION [None]
  - EAR PAIN [None]
  - EYE BURNS [None]
  - EYE IRRITATION [None]
  - GENERALISED OEDEMA [None]
  - HEADACHE [None]
  - HYPERSENSITIVITY [None]
  - HYPOAESTHESIA [None]
  - MOUTH HAEMORRHAGE [None]
  - OEDEMA PERIPHERAL [None]
  - POOR QUALITY SLEEP [None]
  - PRURITUS [None]
  - SOMNOLENCE [None]
  - THERMAL BURN [None]
  - URTICARIA [None]
  - VISION BLURRED [None]
  - WEIGHT DECREASED [None]
